FAERS Safety Report 23234362 (Version 1)
Quarter: 2023Q4

REPORT INFORMATION
  Report Type: Report from Study
  Country: BR (occurrence: BR)
  Receive Date: 20231128
  Receipt Date: 20231128
  Transmission Date: 20240109
  Serious: Yes (Other)
  Sender: FDA-Public Use
  Company Number: BR-JNJFOC-20220948204

PATIENT
  Age: 56 Year
  Sex: Female

DRUGS (3)
  1. SIMPONI [Suspect]
     Active Substance: GOLIMUMAB
     Indication: Product used for unknown indication
     Route: 058
  2. GOLIMUMAB [Suspect]
     Active Substance: GOLIMUMAB
     Indication: Ankylosing spondylitis
     Dosage: LAST DRUG APPLICATION: 17-OCT-2023
     Route: 058
  3. GOLIMUMAB [Suspect]
     Active Substance: GOLIMUMAB

REACTIONS (5)
  - Rheumatoid arthritis [Unknown]
  - Eye operation [Unknown]
  - Intervertebral disc protrusion [Unknown]
  - Abdominal pain upper [Unknown]
  - Influenza [Unknown]
